FAERS Safety Report 8991943 (Version 2)
Quarter: 2013Q4

REPORT INFORMATION
  Report Type: Spontaneous
  Country: GB (occurrence: GB)
  Receive Date: 20121231
  Receipt Date: 20131007
  Transmission Date: 20140711
  Serious: Yes (Other)
  Sender: FDA-Public Use
  Company Number: GB-BANPHARM-20120493

PATIENT
  Age: 73 Year
  Sex: 0

DRUGS (6)
  1. IBUPROFEN UNKNOWN PRODUCT [Suspect]
     Indication: ARTHRITIS
     Dosage: 400 MG, QD,
     Route: 048
     Dates: start: 200406
  2. AMLODIPINE [Concomitant]
     Dosage: 5 MG, QD,
     Route: 048
  3. BISOPROLOL [Concomitant]
     Dosage: 5 MG,
     Route: 048
  4. FERROUS SULPHATE [Concomitant]
  5. RAMIPRIL [Concomitant]
     Dosage: 10 MG, QD,
     Route: 048
  6. SIMVASTATIN [Concomitant]
     Dosage: 40 MG, QD,
     Route: 048

REACTIONS (5)
  - Condition aggravated [Recovered/Resolved]
  - Anaemia [Recovering/Resolving]
  - Upper gastrointestinal haemorrhage [Recovering/Resolving]
  - Oesophagitis [Unknown]
  - Duodenitis [Unknown]
